FAERS Safety Report 16357646 (Version 1)
Quarter: 2019Q2

REPORT INFORMATION
  Report Type: Spontaneous
  Country: US (occurrence: US)
  Receive Date: 20190527
  Receipt Date: 20190527
  Transmission Date: 20190711
  Serious: Yes (Other)
  Sender: FDA-Public Use
  Company Number: US-BAUSCH-BL-2019-014503

PATIENT
  Age: 52 Year
  Sex: Male

DRUGS (1)
  1. NIFEDIPINE XL [Suspect]
     Active Substance: NIFEDIPINE
     Indication: HYPERTENSION
     Route: 048
     Dates: start: 20190509, end: 20190512

REACTIONS (1)
  - Heart rate increased [Recovering/Resolving]

NARRATIVE: CASE EVENT DATE: 20190509
